FAERS Safety Report 16059451 (Version 1)
Quarter: 2019Q1

REPORT INFORMATION
  Report Type: Spontaneous
  Country: US (occurrence: US)
  Receive Date: 20190311
  Receipt Date: 20190311
  Transmission Date: 20190418
  Serious: No
  Sender: FDA-Public Use
  Company Number: US-GALDERMA-US18010554

PATIENT
  Age: 68 Year
  Sex: Female

DRUGS (2)
  1. TRI-LUMA [Suspect]
     Active Substance: FLUOCINOLONE ACETONIDE\HYDROQUINONE\TRETINOIN
     Indication: SKIN DISCOLOURATION
     Route: 061
     Dates: start: 20180506, end: 20180509
  2. ARMOUR THYROID [Concomitant]
     Active Substance: THYROID, PORCINE

REACTIONS (4)
  - Erythema [Recovered/Resolved]
  - Skin exfoliation [Recovered/Resolved]
  - Intentional product misuse [None]
  - Pruritus [Recovered/Resolved]

NARRATIVE: CASE EVENT DATE: 20180506
